FAERS Safety Report 4478190-4 (Version None)
Quarter: 2004Q4

REPORT INFORMATION
  Report Type: 
  Country: None (occurrence: None)
  Receive Date: 20041018
  Receipt Date: 20041018
  Transmission Date: 20050328
  Serious: Yes (Hospitalization)
  Sender: FDA-Public Use
  Company Number: None

PATIENT
  Age: 56 Year
  Sex: Male

DRUGS (1)
  1. NAFCILLIN [Suspect]
     Indication: INFECTION

REACTIONS (4)
  - CONTRAST MEDIA REACTION [None]
  - HEPATORENAL SYNDROME [None]
  - NEPHRITIS ALLERGIC [None]
  - RENAL FAILURE ACUTE [None]
